FAERS Safety Report 17336914 (Version 2)
Quarter: 2020Q2

REPORT INFORMATION
  Report Type: Spontaneous
  Country: JP (occurrence: JP)
  Receive Date: 20200128
  Receipt Date: 20200505
  Transmission Date: 20200713
  Serious: No
  Sender: FDA-Public Use
  Company Number: JP-ASTRAZENECA-2019SF54935

PATIENT
  Age: 42 Year
  Sex: Female
  Weight: 79 kg

DRUGS (13)
  1. EPINASTINE. [Concomitant]
     Active Substance: EPINASTINE HYDROCHLORIDE
     Indication: RHINITIS ALLERGIC
     Route: 048
     Dates: end: 20180511
  2. BOSMIN [Concomitant]
     Active Substance: EPINEPHRINE
     Dosage: DOSE AND FREQUENCY UNKNOWN
     Route: 041
     Dates: start: 20190215, end: 20190216
  3. SYMBICORT [Concomitant]
     Active Substance: BUDESONIDE\FORMOTEROL FUMARATE DIHYDRATE
     Indication: ASTHMA
     Route: 055
     Dates: end: 20190329
  4. NASONEX [Concomitant]
     Active Substance: MOMETASONE FUROATE
     Indication: RHINITIS ALLERGIC
     Route: 045
  5. FASENRA [Suspect]
     Active Substance: BENRALIZUMAB
     Indication: ASTHMA
     Route: 058
     Dates: start: 20180414, end: 20190527
  6. CELESTAMINE [Concomitant]
     Active Substance: BETAMETHASONE\DEXCHLORPHENIRAMINE MALEATE
     Indication: RHINITIS ALLERGIC
     Dosage: 1.0DF AS REQUIRED
     Route: 048
  7. SPIRIVA [Concomitant]
     Active Substance: TIOTROPIUM BROMIDE MONOHYDRATE
     Indication: ASTHMA
     Route: 055
  8. XYZAL [Concomitant]
     Active Substance: LEVOCETIRIZINE DIHYDROCHLORIDE
     Indication: RHINITIS ALLERGIC
     Route: 048
     Dates: start: 20180512
  9. HUMIRA [Concomitant]
     Active Substance: ADALIMUMAB
     Indication: COLITIS ULCERATIVE
     Route: 058
  10. ADOAIR [Concomitant]
     Active Substance: FLUTICASONE PROPIONATE\SALMETEROL XINAFOATE
     Indication: ASTHMA
     Route: 055
     Dates: start: 20190330
  11. BOSMIN [Concomitant]
     Active Substance: EPINEPHRINE
     Dosage: DOSE AND FREQUENCY UNKNOWN
     Route: 041
     Dates: start: 20190202, end: 20190202
  12. BOSMIN [Concomitant]
     Active Substance: EPINEPHRINE
     Dosage: DOSE AND FREQUENCY UNKNOWN
     Route: 041
     Dates: start: 20190218, end: 20190218
  13. DESALEX [Concomitant]
     Active Substance: DESLORATADINE
     Indication: RHINITIS ALLERGIC
     Route: 048
     Dates: start: 20180816

REACTIONS (1)
  - Drug ineffective [Unknown]
